FAERS Safety Report 18433659 (Version 2)
Quarter: 2021Q2

REPORT INFORMATION
  Report Type: Report from Study
  Country: US (occurrence: US)
  Receive Date: 20201027
  Receipt Date: 20210409
  Transmission Date: 20210717
  Serious: Yes (Hospitalization)
  Sender: FDA-Public Use
  Company Number: US-EISAI MEDICAL RESEARCH-EC-2020-082506

PATIENT
  Age: 52 Year
  Sex: Female
  Weight: 66.4 kg

DRUGS (15)
  1. CHOLECALCIFEROL [Concomitant]
     Active Substance: CHOLECALCIFEROL
  2. RIVAROXABAN [Concomitant]
     Active Substance: RIVAROXABAN
  3. ERIBULIN [Suspect]
     Active Substance: ERIBULIN
     Route: 042
     Dates: end: 20210323
  4. AMBIEN [Concomitant]
     Active Substance: ZOLPIDEM TARTRATE
  5. THYROID PORK [Concomitant]
  6. ERIBULIN [Suspect]
     Active Substance: ERIBULIN
     Indication: ANGIOSARCOMA
     Route: 042
     Dates: start: 20200922, end: 20201013
  7. ASPIRIN. [Concomitant]
     Active Substance: ASPIRIN
  8. COMPAZINE [Concomitant]
     Active Substance: PROCHLORPERAZINE MALEATE
  9. LORAZEPAM. [Concomitant]
     Active Substance: LORAZEPAM
  10. MAGNESIUM MALATE. [Concomitant]
     Active Substance: MAGNESIUM MALATE
  11. MELATONIN [Concomitant]
     Active Substance: MELATONIN
  12. PEMBROLIZUMAB. [Suspect]
     Active Substance: PEMBROLIZUMAB
     Indication: ANGIOSARCOMA
     Route: 042
     Dates: start: 20200922, end: 20201013
  13. PEMBROLIZUMAB. [Suspect]
     Active Substance: PEMBROLIZUMAB
     Route: 042
     Dates: end: 20210216
  14. B COMPLEX VITAMIN [Concomitant]
  15. ZOFRAN [Concomitant]
     Active Substance: ONDANSETRON HYDROCHLORIDE

REACTIONS (3)
  - Hypotension [Unknown]
  - Rash maculo-papular [Unknown]
  - Anaemia [Unknown]

NARRATIVE: CASE EVENT DATE: 20201020
